FAERS Safety Report 13536323 (Version 1)
Quarter: 2017Q2

REPORT INFORMATION
  Report Type: Spontaneous
  Country: BR (occurrence: BR)
  Receive Date: 20170511
  Receipt Date: 20170511
  Transmission Date: 20170830
  Serious: Yes (Other)
  Sender: FDA-Public Use
  Company Number: BR-ABBVIE-16P-020-1680692-00

PATIENT
  Sex: Female
  Weight: 70 kg

DRUGS (4)
  1. SYNTHROID [Suspect]
     Active Substance: LEVOTHYROXINE SODIUM
     Dosage: DAILY DOSE: 1 TABLET, MORNING, 30 MINUTES BEFORE BREAKFAST
     Route: 048
  2. SYNTHROID [Suspect]
     Active Substance: LEVOTHYROXINE SODIUM
     Dosage: DAILY DOSE: 1 TABLET, MORNING, 30 MINUTES BEFORE BREAKFAST
     Route: 048
  3. SYNTHROID [Suspect]
     Active Substance: LEVOTHYROXINE SODIUM
     Dosage: DAILY DOSE: 1 TABLET, MORNING, 30 MINUTES BEFORE BREAKFAST
     Route: 048
  4. SYNTHROID [Suspect]
     Active Substance: LEVOTHYROXINE SODIUM
     Indication: PRODUCT USED FOR UNKNOWN INDICATION
     Dosage: SHE HAS BEEN TAKING SYNTHROID FOR 20 YEARS
     Route: 048

REACTIONS (3)
  - Uterine contractions abnormal [Unknown]
  - Thyroid disorder [Unknown]
  - Live birth [Unknown]
